FAERS Safety Report 5674871-5 (Version None)
Quarter: 2008Q1

REPORT INFORMATION
  Report Type: 
  Country: None (occurrence: None)
  Receive Date: 20080319
  Receipt Date: 20080319
  Transmission Date: 20080703
  Serious: Yes (Life-Threatening, Disabling, Other)
  Sender: FDA-Public Use
  Company Number: None

PATIENT
  Sex: Female
  Weight: 61.2356 kg

DRUGS (2)
  1. LEXAPRO [Suspect]
     Indication: ANXIETY
     Dosage: 10MG ONCE A DAY PO
     Route: 048
     Dates: start: 20010809, end: 20080314
  2. LEXAPRO [Suspect]
     Indication: DEPRESSION
     Dosage: 10MG ONCE A DAY PO
     Route: 048
     Dates: start: 20010809, end: 20080314

REACTIONS (3)
  - MOOD SWINGS [None]
  - SUICIDAL IDEATION [None]
  - WRONG DRUG ADMINISTERED [None]
